FAERS Safety Report 12223130 (Version 1)
Quarter: 2016Q1

REPORT INFORMATION
  Report Type: Spontaneous
  Country: US (occurrence: US)
  Receive Date: 20160330
  Receipt Date: 20160330
  Transmission Date: 20160526
  Serious: No
  Sender: FDA-Public Use
  Company Number: US-PFIZER INC-2016174962

PATIENT
  Age: 18 Year
  Sex: Male
  Weight: 69 kg

DRUGS (2)
  1. BENEFIX [Suspect]
     Active Substance: COAGULATION FACTOR IX RECOMBINANT HUMAN\ISOPROPYL ALCOHOL
     Indication: FACTOR IX DEFICIENCY
     Dosage: 2090 IU, UNK
  2. BENEFIX [Suspect]
     Active Substance: COAGULATION FACTOR IX RECOMBINANT HUMAN\ISOPROPYL ALCOHOL
     Dosage: 4180 IU, AS NEEDED
     Dates: start: 201002

REACTIONS (4)
  - Intentional product misuse [Unknown]
  - Activities of daily living impaired [Unknown]
  - Arthralgia [Unknown]
  - Insomnia [Unknown]
